FAERS Safety Report 6533988-3 (Version None)
Quarter: 2010Q1

REPORT INFORMATION
  Report Type: 
  Country: None (occurrence: None)
  Receive Date: 20100112
  Receipt Date: 20100104
  Transmission Date: 20100710
  Serious: Yes (Other)
  Sender: FDA-Public Use
  Company Number: FR-ROCHE-675331

PATIENT
  Sex: Female
  Weight: 67 kg

DRUGS (7)
  1. BONIVA [Suspect]
     Indication: OSTEOPOROSIS
     Dosage: DOSE REPORTED AS 1 DOSE MONTHLY
     Route: 048
     Dates: start: 20080901, end: 20091105
  2. CHONDROSULF [Suspect]
     Dosage: DOSE: 3 UNITS; DRUG: CHONDROSULF 400
     Route: 048
     Dates: start: 20090202
  3. SECTRAL [Suspect]
     Indication: DRUG USE FOR UNKNOWN INDICATION
     Dosage: DOSE: 1 UNIT
     Route: 048
     Dates: start: 20040101
  4. GINKOR [Concomitant]
  5. TANAKAN [Concomitant]
  6. CALCIDOSE [Concomitant]
  7. MOPRAL [Concomitant]

REACTIONS (2)
  - ARTHRITIS [None]
  - CYTOLYTIC HEPATITIS [None]
